FAERS Safety Report 10273630 (Version 2)
Quarter: 2014Q3

REPORT INFORMATION
  Report Type: Spontaneous
  Country: JP (occurrence: JP)
  Receive Date: 20140702
  Receipt Date: 20140702
  Transmission Date: 20150326
  Serious: Yes (Hospitalization)
  Sender: FDA-Public Use
  Company Number: PHHY2011JP53234

PATIENT
  Age: 32 Year
  Sex: Female
  Weight: 65 kg

DRUGS (12)
  1. TEGRETOL [Suspect]
     Active Substance: CARBAMAZEPINE
     Indication: CONVULSION
     Route: 042
  2. ADALAT [Concomitant]
     Active Substance: NIFEDIPINE
     Route: 048
  3. FRAGMIN [Concomitant]
     Active Substance: DALTEPARIN SODIUM
     Route: 042
  4. MAGNESOL [Concomitant]
     Route: 042
  5. MANNITOL. [Concomitant]
     Active Substance: MANNITOL
     Route: 042
  6. ALBUMINAR [Concomitant]
     Active Substance: ALBUMIN (HUMAN)
     Route: 042
  7. ALEVIATIN [Concomitant]
     Active Substance: PHENYTOIN SODIUM
     Route: 042
  8. APRESOLINE HYDROCHLORIDE [Concomitant]
     Active Substance: HYDRALAZINE HYDROCHLORIDE
     Route: 042
  9. NICARPINE [Concomitant]
     Active Substance: NICARDIPINE
     Route: 042
  10. ALDOMET [Concomitant]
     Active Substance: METHYLDOPA
     Route: 048
  11. LASIX [Concomitant]
     Active Substance: FUROSEMIDE
     Route: 042
  12. CERCINE [Concomitant]
     Active Substance: DIAZEPAM
     Route: 042

REACTIONS (13)
  - Erythema [Unknown]
  - Drug eruption [Unknown]
  - Hepatic function abnormal [Recovering/Resolving]
  - Pyrexia [Recovering/Resolving]
  - Necrosis [Unknown]
  - Systemic lupus erythematosus [Recovering/Resolving]
  - Pancytopenia [Unknown]
  - Sjogren^s syndrome [Unknown]
  - Pruritus [Unknown]
  - Condition aggravated [Recovering/Resolving]
  - Hyperplasia [Unknown]
  - Rash [Recovering/Resolving]
  - Lymphadenopathy [Recovering/Resolving]
